FAERS Safety Report 25134456 (Version 1)
Quarter: 2025Q1

REPORT INFORMATION
  Report Type: Spontaneous
  Country: US (occurrence: None)
  Receive Date: 20250327
  Receipt Date: 20250327
  Transmission Date: 20250409
  Serious: Yes (Other)
  Sender: FDA-CTU
  Company Number: None

PATIENT
  Age: 76 Year
  Sex: Male

DRUGS (1)
  1. LENALIDOMIDE [Suspect]
     Active Substance: LENALIDOMIDE
     Indication: Plasma cell myeloma
     Dosage: 15MG DALILY X ORAL
     Route: 048
     Dates: start: 20241025, end: 20250225

REACTIONS (2)
  - Abdominal pain [None]
  - Muscle spasms [None]

NARRATIVE: CASE EVENT DATE: 20250320
